FAERS Safety Report 17101720 (Version 1)
Quarter: 2019Q4

REPORT INFORMATION
  Report Type: Spontaneous
  Country: CH (occurrence: CH)
  Receive Date: 20191202
  Receipt Date: 20191202
  Transmission Date: 20200122
  Serious: Yes (Hospitalization, Other)
  Sender: FDA-Public Use
  Company Number: CH-OTSUKA-2019_040109

PATIENT
  Age: 14 Year
  Sex: Female
  Weight: 88 kg

DRUGS (8)
  1. ABILIFY [Suspect]
     Active Substance: ARIPIPRAZOLE
     Indication: PSYCHOTIC DISORDER
     Dosage: UNK
     Route: 048
     Dates: start: 20180807
  2. ZYPREXA [Suspect]
     Active Substance: OLANZAPINE
     Dosage: 10 MG, QD  (5-0-0-5) WITH 2 X 5 MG/DAY AS NECESSARY
     Route: 048
     Dates: start: 20191031
  3. ZOLOFT [Suspect]
     Active Substance: SERTRALINE HYDROCHLORIDE
     Dosage: UNK
     Route: 048
     Dates: end: 20191031
  4. ABILIFY [Suspect]
     Active Substance: ARIPIPRAZOLE
     Dosage: 20 MG, QD (IN THE MORNING)
     Route: 048
     Dates: start: 20180914
  5. ZOLOFT [Suspect]
     Active Substance: SERTRALINE HYDROCHLORIDE
     Dosage: 75 MG, QD (IN THE MIORNING)
     Route: 048
  6. ZOLOFT [Suspect]
     Active Substance: SERTRALINE HYDROCHLORIDE
     Indication: PSYCHOTIC DISORDER
     Dosage: 50 MG, QD (IN THE MORNING)
     Route: 048
     Dates: start: 201909, end: 20190930
  7. ZYPREXA [Suspect]
     Active Substance: OLANZAPINE
     Indication: PSYCHOTIC DISORDER
     Dosage: UNK
     Route: 048
     Dates: start: 201909, end: 201910
  8. ZYPREXA [Suspect]
     Active Substance: OLANZAPINE
     Dosage: LEFT AS RESERVE (AS NECESSARY)
     Route: 048
     Dates: start: 201910, end: 20191031

REACTIONS (4)
  - Hallucination, auditory [Unknown]
  - Suicidal ideation [Unknown]
  - Weight increased [Not Recovered/Not Resolved]
  - Product use in unapproved indication [Unknown]

NARRATIVE: CASE EVENT DATE: 20180807
